FAERS Safety Report 17171788 (Version 2)
Quarter: 2020Q2

REPORT INFORMATION
  Report Type: Spontaneous
  Country: US (occurrence: US)
  Receive Date: 20191218
  Receipt Date: 20200417
  Transmission Date: 20200713
  Serious: Yes (Other)
  Sender: FDA-Public Use
  Company Number: US-SA-2019SA348076

PATIENT
  Age: 51 Year
  Sex: Female
  Weight: 102.04 kg

DRUGS (3)
  1. GEMZAR [Concomitant]
     Active Substance: GEMCITABINE HYDROCHLORIDE
  2. TAXOTERE [Suspect]
     Active Substance: DOCETAXEL
     Indication: ENDOMETRIAL STROMAL SARCOMA
     Dosage: APPROXIMATELY 80 MG /4 ML INTRAVENOUS (DAY 1) AND 160 MG/250 ML (DAY 8)
     Route: 042
     Dates: start: 201805, end: 201805
  3. TAXOTERE [Suspect]
     Active Substance: DOCETAXEL
     Dosage: APPROXIMATELY 80 MG /4 ML INTRAVENOUS (DAY 1) AND 160 MG/250 ML (DAY 8)
     Route: 042
     Dates: start: 201810, end: 201810

REACTIONS (3)
  - Emotional distress [Unknown]
  - Psychological trauma [Unknown]
  - Alopecia [Recovering/Resolving]

NARRATIVE: CASE EVENT DATE: 201807
